FAERS Safety Report 5567242-3 (Version None)
Quarter: 2007Q4

REPORT INFORMATION
  Report Type: 
  Country: None (occurrence: None)
  Receive Date: 20071219
  Receipt Date: 20060601
  Transmission Date: 20080405
  Serious: Yes (Other)
  Sender: FDA-Public Use
  Company Number: CN-BOEHRINGER INGELHEIM PHARMACEUTICALS, INC.-2006-BP-06687CS

PATIENT
  Age: 60 Year
  Sex: Female
  Weight: 80 kg

DRUGS (2)
  1. MICARDIS [Suspect]
     Indication: HYPERTENSION
     Route: 048
     Dates: start: 20060531, end: 20060602
  2. BETALOC (METOPROLOL TARTRATE) [Concomitant]
     Indication: HYPERTENSION
     Route: 048
     Dates: start: 20050101

REACTIONS (1)
  - SCIATICA [None]
